FAERS Safety Report 6215438-X (Version None)
Quarter: 2009Q2

REPORT INFORMATION
  Report Type: 
  Country: None (occurrence: None)
  Receive Date: 20090603
  Receipt Date: 20090525
  Transmission Date: 20091009
  Serious: Yes (Hospitalization)
  Sender: FDA-Public Use
  Company Number: 2009AL003528

PATIENT
  Age: 82 Year
  Sex: Male

DRUGS (6)
  1. DIGOXIN [Suspect]
     Dosage: PO
     Route: 048
  2. CARVEDILOL [Concomitant]
  3. APIXABAN [Concomitant]
  4. ASPIRIN [Concomitant]
  5. SPIRONOLACTONE [Concomitant]
  6. LISINOPRIL [Concomitant]

REACTIONS (2)
  - RENAL FAILURE ACUTE [None]
  - THERAPEUTIC AGENT TOXICITY [None]
